FAERS Safety Report 4595591-4 (Version None)
Quarter: 2005Q1

REPORT INFORMATION
  Report Type: 
  Country: None (occurrence: None)
  Receive Date: 20050224
  Receipt Date: 20050218
  Transmission Date: 20050727
  Serious: Yes (Hospitalization, Other)
  Sender: FDA-Public Use
  Company Number: KII-2005-0015233

PATIENT
  Age: 47 Year
  Sex: Female

DRUGS (6)
  1. MORPHINE SULFATE [Suspect]
     Dosage: INTRAVENOUS
     Route: 042
  2. TRAZODONE (TRAZODONE) [Suspect]
     Dosage: ORAL
     Route: 048
  3. HEROIN (DIAMORPHINE) [Suspect]
     Dosage: INTRAVENOUS
     Route: 042
  4. COCAINE (COCAINE) [Suspect]
  5. AMPHETAMINE SULFATE TAB [Suspect]
  6. BENZODIAZEPINE DERIVATIVES() [Suspect]

REACTIONS (6)
  - ABDOMINAL PAIN [None]
  - ARTHRALGIA [None]
  - DIARRHOEA [None]
  - ELECTROCARDIOGRAM ST SEGMENT ABNORMAL [None]
  - HEART RATE DECREASED [None]
  - POLYSUBSTANCE ABUSE [None]
